FAERS Safety Report 19497070 (Version 1)
Quarter: 2021Q3

REPORT INFORMATION
  Report Type: Spontaneous
  Country: US (occurrence: US)
  Receive Date: 20210705
  Receipt Date: 20210705
  Transmission Date: 20211014
  Serious: Yes (Other)
  Sender: FDA-Public Use
  Company Number: None

PATIENT
  Age: 68 Year
  Sex: Female
  Weight: 51.75 kg

DRUGS (13)
  1. METAMUCIL [Concomitant]
     Active Substance: PLANTAGO SEED
  2. FLECANIDE [Concomitant]
     Active Substance: FLECAINIDE
  3. B?2 [Concomitant]
  4. CHELATED MAGNESIUM [Concomitant]
  5. SUPREP BOWEL PREP [Suspect]
     Active Substance: MAGNESIUM SULFATE\POTASSIUM SULFATE\SODIUM SULFATE
     Indication: BOWEL PREPARATION
     Dosage: ?          QUANTITY:6 OUNCE(S);OTHER FREQUENCY:SPLIT ?DOSE 2 DAY;?
     Route: 048
     Dates: start: 20210625, end: 20210626
  6. ZETIA [Concomitant]
     Active Substance: EZETIMIBE
  7. COENZYME Q10 [Concomitant]
     Active Substance: DIETARY SUPPLEMENT\UBIDECARENONE
  8. FISH OIL [Concomitant]
     Active Substance: FISH OIL
  9. ASPIRIN 81 MG [Concomitant]
     Active Substance: ASPIRIN
  10. CRESTOR [Concomitant]
     Active Substance: ROSUVASTATIN CALCIUM
  11. CARVEDILOL. [Concomitant]
     Active Substance: CARVEDILOL
  12. VIT D?3 [Concomitant]
  13. ZINC. [Concomitant]
     Active Substance: ZINC

REACTIONS (1)
  - Drug ineffective [None]

NARRATIVE: CASE EVENT DATE: 20210625
